FAERS Safety Report 10368876 (Version 1)
Quarter: 2014Q1

REPORT INFORMATION
  Report Type: Spontaneous
  Country: US (occurrence: None)
  Receive Date: 20140306
  Receipt Date: 20140306
  Transmission Date: 20141002
  Serious: Yes (Hospitalization)
  Sender: FDA-Public Use
  Company Number: 163-21880-13091647

PATIENT
  Age: 79 Year
  Sex: Male

DRUGS (5)
  1. REVLIMID (LENALIDOMIDE) (10 MILLIGRAM, CAPSULES) [Suspect]
     Indication: PLASMA CELL MYELOMA
     Dosage: 10 MG , 1 IN 1 D, PO 12 / 2012 - ONGOING THERAPY DATE
     Route: 048
     Dates: start: 201212
  2. WARFARIN SODIUM [Concomitant]
  3. DEXAMETHASONE [Concomitant]
  4. SIMVASTATIN [Concomitant]
  5. TAMSULOSIN HCL (TAMSULOSIN HYDROCHLORIDE) [Concomitant]

REACTIONS (1)
  - Cellulitis [None]
